FAERS Safety Report 8534492-3 (Version None)
Quarter: 2012Q3

REPORT INFORMATION
  Report Type: 
  Country: None (occurrence: None)
  Receive Date: 20120724
  Receipt Date: 20120719
  Transmission Date: 20120928
  Serious: Yes (Other)
  Sender: FDA-Public Use
  Company Number: GB-BAYER-2012-072517

PATIENT
  Age: 33 Year
  Sex: Female
  Weight: 57.15 kg

DRUGS (1)
  1. MIRENA [Suspect]
     Indication: CONTRACEPTION
     Dosage: 20 MCG/24HR, CONT
     Route: 015
     Dates: start: 19980101

REACTIONS (2)
  - SIMPLE PARTIAL SEIZURES [None]
  - TEMPORAL LOBE EPILEPSY [None]
